FAERS Safety Report 25218700 (Version 2)
Quarter: 2025Q3

REPORT INFORMATION
  Report Type: Spontaneous
  Country: HK (occurrence: HK)
  Receive Date: 20250421
  Receipt Date: 20250710
  Transmission Date: 20251020
  Serious: Yes (Other)
  Sender: MERCK SHARP & DOHME LLC
  Company Number: HK-009507513-2277342

PATIENT
  Age: 69 Year
  Sex: Male

DRUGS (4)
  1. KEYTRUDA [Suspect]
     Active Substance: PEMBROLIZUMAB
     Indication: Gastric cancer
     Dates: start: 202403
  2. TRASTUZUMAB [Suspect]
     Active Substance: TRASTUZUMAB
     Indication: Gastric cancer
     Dates: start: 202403
  3. CAPECITABINE [Suspect]
     Active Substance: CAPECITABINE
     Indication: Gastric cancer
     Dates: start: 202403
  4. OXALIPLATIN [Suspect]
     Active Substance: OXALIPLATIN
     Indication: Gastric cancer
     Dates: start: 202403

REACTIONS (8)
  - Malignant neoplasm oligoprogression [Unknown]
  - Neuropathy peripheral [Unknown]
  - Neutropenia [Unknown]
  - Decreased appetite [Recovering/Resolving]
  - Vomiting [Unknown]
  - Weight decreased [Unknown]
  - Dysphagia [Unknown]
  - Oesophageal wall hypertrophy [Unknown]

NARRATIVE: CASE EVENT DATE: 20240101
